FAERS Safety Report 5141620-9 (Version None)
Quarter: 2006Q4

REPORT INFORMATION
  Report Type: 
  Country: None (occurrence: None)
  Receive Date: 20061026
  Receipt Date: 20060922
  Transmission Date: 20070319
  Serious: Yes (Other)
  Sender: FDA-Public Use
  Company Number: HQWYE344220OCT06

PATIENT
  Sex: Female

DRUGS (2)
  1. EFFEXOR XR [Suspect]
     Dosage: SEE IMAGE
     Dates: start: 20060101, end: 20060101
  2. EFFEXOR XR [Suspect]
     Dosage: SEE IMAGE
     Dates: end: 20060101

REACTIONS (3)
  - ANORGASMIA [None]
  - DRUG DEPENDENCE [None]
  - DRUG WITHDRAWAL SYNDROME [None]
